FAERS Safety Report 17976064 (Version 2)
Quarter: 2020Q3

REPORT INFORMATION
  Report Type: Spontaneous
  Country: US (occurrence: US)
  Receive Date: 20200702
  Receipt Date: 20200721
  Transmission Date: 20201103
  Serious: Yes (Other)
  Sender: FDA-Public Use
  Company Number: US-MALLINCKRODT-T202003017

PATIENT
  Sex: Female
  Weight: 7 kg

DRUGS (8)
  1. H.P. ACTHAR [Suspect]
     Active Substance: CORTICOTROPIN
     Dosage: 0.05 MILLILITER, QOD FOR 3 DOSES
     Route: 030
  2. H.P. ACTHAR [Suspect]
     Active Substance: CORTICOTROPIN
     Indication: INFANTILE SPASMS
     Dosage: 0.14 MILLILITER, QD FOR 3 DAYS
     Route: 030
  3. H.P. ACTHAR [Suspect]
     Active Substance: CORTICOTROPIN
     Dosage: WEANED DOWN
     Route: 065
     Dates: start: 2020
  4. TYLENOL [Suspect]
     Active Substance: ACETAMINOPHEN
     Indication: TEETHING
     Dosage: UNK, EVERY FOUR HOURS 7OZ
     Route: 065
  5. H.P. ACTHAR [Suspect]
     Active Substance: CORTICOTROPIN
     Indication: EPILEPSY
     Dosage: 0.35 MILLILITER, BID FOR 8 DAYS
     Route: 030
  6. H.P. ACTHAR [Suspect]
     Active Substance: CORTICOTROPIN
     Dosage: 0.05 MILLILITER, QD
     Route: 030
     Dates: start: 20200620, end: 2020
  7. H.P. ACTHAR [Suspect]
     Active Substance: CORTICOTROPIN
     Dosage: 0.07 MILLILITER, QD FOR 3 DAYS
     Route: 030
  8. H.P. ACTHAR [Suspect]
     Active Substance: CORTICOTROPIN
     Dosage: 0.05 MILLILITER, QD FOR 3 DAYS
     Route: 030

REACTIONS (3)
  - Irritability [Unknown]
  - Condition aggravated [Recovered/Resolved]
  - Infantile spasms [Recovered/Resolved]

NARRATIVE: CASE EVENT DATE: 2020
